FAERS Safety Report 21141550 (Version 1)
Quarter: 2022Q3

REPORT INFORMATION
  Report Type: Spontaneous
  Country: US (occurrence: None)
  Receive Date: 20220727
  Receipt Date: 20220727
  Transmission Date: 20221027
  Serious: Yes (Hospitalization, Other)
  Sender: FDA-Public Use
  Company Number: None

PATIENT
  Age: 39 Year
  Sex: Female
  Weight: 63.45 kg

DRUGS (1)
  1. MAGNESIUM CITRATE [Suspect]
     Active Substance: MAGNESIUM CITRATE
     Indication: Colonoscopy
     Dosage: OTHER FREQUENCY : 2X MONTH FOR JULY;?
     Route: 048

REACTIONS (13)
  - Herpes zoster [None]
  - Nonspecific reaction [None]
  - Influenza like illness [None]
  - Rash [None]
  - Blister [None]
  - Swelling [None]
  - Dizziness [None]
  - Nausea [None]
  - Sepsis [None]
  - Chest pain [None]
  - Pruritus [None]
  - Myocardial infarction [None]
  - Sleep disorder [None]

NARRATIVE: CASE EVENT DATE: 20220725
